FAERS Safety Report 12865610 (Version 1)
Quarter: 2016Q4

REPORT INFORMATION
  Report Type: Spontaneous
  Country: US (occurrence: US)
  Receive Date: 20161020
  Receipt Date: 20161020
  Transmission Date: 20170207
  Serious: No
  Sender: FDA-Public Use
  Company Number: None

PATIENT

DRUGS (1)
  1. OMNICEF [Suspect]
     Active Substance: CEFDINIR
     Dosage: OMNICEF - DOSAGE FORM - LIQUID

REACTIONS (1)
  - Incorrect drug administration duration [None]
